FAERS Safety Report 24399156 (Version 3)
Quarter: 2024Q4

REPORT INFORMATION
  Report Type: Spontaneous
  Country: JP (occurrence: JP)
  Receive Date: 20241004
  Receipt Date: 20241022
  Transmission Date: 20250115
  Serious: Yes (Life-Threatening, Other)
  Sender: PFIZER
  Company Number: JP-PFIZER INC-PV202400128824

PATIENT
  Age: 10 Year
  Sex: Male

DRUGS (7)
  1. FOSPHENYTOIN SODIUM [Suspect]
     Active Substance: FOSPHENYTOIN SODIUM
     Indication: Acute encephalitis with refractory, repetitive partial seizures
     Dosage: UNK
     Route: 042
  2. LEVETIRACETAM [Suspect]
     Active Substance: LEVETIRACETAM
     Indication: Acute encephalitis with refractory, repetitive partial seizures
     Dosage: UNK
     Route: 042
  3. PHENOBARBITAL SODIUM [Concomitant]
     Active Substance: PHENOBARBITAL SODIUM
     Indication: Acute encephalitis with refractory, repetitive partial seizures
     Dosage: UNK, HIGH-DOSE ; 1D
     Route: 042
     Dates: start: 20240201
  4. PHENOBARBITAL SODIUM [Concomitant]
     Active Substance: PHENOBARBITAL SODIUM
     Indication: Epilepsy
  5. MIDAZOLAM [Concomitant]
     Active Substance: MIDAZOLAM
     Indication: Acute encephalitis with refractory, repetitive partial seizures
     Dosage: UNK
     Route: 042
  6. THIAMYLAL SODIUM [Concomitant]
     Active Substance: THIAMYLAL SODIUM
     Indication: Acute encephalitis with refractory, repetitive partial seizures
     Dosage: UNK
     Route: 042
  7. IMMUNE GLOBULIN NOS [Concomitant]
     Active Substance: IMMUNE GLOBULIN NOS
     Indication: Seizure cluster
     Dosage: UNK

REACTIONS (1)
  - Drug ineffective [Unknown]
